FAERS Safety Report 21771505 (Version 1)
Quarter: 2022Q4

REPORT INFORMATION
  Report Type: Spontaneous
  Country: FR (occurrence: None)
  Receive Date: 20221223
  Receipt Date: 20221223
  Transmission Date: 20230112
  Serious: Yes (Other)
  Sender: FDA-Public Use
  Company Number: FR-ROCHE-3248756

PATIENT
  Age: 82 Year
  Sex: Male

DRUGS (6)
  1. RIVOTRIL [Suspect]
     Active Substance: CLONAZEPAM
     Indication: Neuropathy peripheral
     Dosage: 30 DROP IN 1 TOTAL.
     Route: 048
     Dates: start: 20220808
  2. LAMICTAL [Concomitant]
     Active Substance: LAMOTRIGINE
  3. LYRICA [Concomitant]
     Active Substance: PREGABALIN
  4. EFFEXOR [Concomitant]
     Active Substance: VENLAFAXINE HYDROCHLORIDE
  5. ATENOLOL [Concomitant]
     Active Substance: ATENOLOL
  6. DUTASTERIDE [Concomitant]
     Active Substance: DUTASTERIDE

REACTIONS (3)
  - Somnolence [Recovered/Resolved]
  - Gait disturbance [Unknown]
  - Off label use [Unknown]

NARRATIVE: CASE EVENT DATE: 20220808
